FAERS Safety Report 10446528 (Version 2)
Quarter: 2014Q4

REPORT INFORMATION
  Report Type: Report from Study
  Country: US (occurrence: US)
  Receive Date: 20140911
  Receipt Date: 20141204
  Transmission Date: 20150528
  Serious: Yes (Life-Threatening, Hospitalization)
  Sender: FDA-Public Use
  Company Number: US-ROCHE-1460077

PATIENT
  Age: 55 Year
  Sex: Female
  Weight: 57.2 kg

DRUGS (5)
  1. DOCETAXEL. [Suspect]
     Active Substance: DOCETAXEL
     Indication: BREAST CANCER
     Dosage: 60 MIN ON DAY 1
     Route: 042
     Dates: start: 20140724, end: 20140804
  2. PERTUZUMAB [Suspect]
     Active Substance: PERTUZUMAB
     Indication: BREAST CANCER
     Route: 042
     Dates: start: 20140724, end: 20140804
  3. CARBOPLATIN. [Suspect]
     Active Substance: CARBOPLATIN
     Indication: BREAST CANCER
     Dosage: AUC=6 MG/ML/MIN OVER 30-60 MIN ON DAY 1
     Route: 042
     Dates: start: 20140724
  4. DEXAMETHASONE. [Suspect]
     Active Substance: DEXAMETHASONE
     Indication: PRODUCT USED FOR UNKNOWN INDICATION
     Route: 065
  5. TRASTUZUMAB [Suspect]
     Active Substance: TRASTUZUMAB
     Indication: BREAST CANCER
     Route: 042
     Dates: start: 20140724, end: 20140804

REACTIONS (5)
  - Gastrointestinal stoma complication [Unknown]
  - Hyperglycaemia [Unknown]
  - Hyponatraemia [Recovered/Resolved]
  - Diarrhoea [Unknown]
  - Vulvitis [Unknown]

NARRATIVE: CASE EVENT DATE: 20140802
